FAERS Safety Report 7303637-5 (Version None)
Quarter: 2011Q1

REPORT INFORMATION
  Report Type: 
  Country: None (occurrence: None)
  Receive Date: 20110221
  Receipt Date: 20110210
  Transmission Date: 20110831
  Serious: Yes (Hospitalization, Other)
  Sender: FDA-Public Use
  Company Number: PHHY2011US11186

PATIENT
  Sex: Male
  Weight: 118.37 kg

DRUGS (26)
  1. LISINOPRIL AND HYDROCHLOROTHIAZIDE [Concomitant]
     Dosage: 20/12.5, BID
     Route: 048
  2. TRAMADOL HYDROCHLORIDE AND ACETAMINOPHEN [Concomitant]
     Dosage: 37.5/375, 2 QD (HS)
     Route: 048
  3. VITAMIN E [Concomitant]
  4. ASCORBIC ACID [Concomitant]
     Dosage: 1000 MG, QD
  5. BIO-CALCIUM + D3 + K [Concomitant]
     Dosage: 500 MG+400 IU+400 MCG, PM
  6. MAGNESIUM [Concomitant]
     Dosage: 250 MG, QD
  7. ASPIRIN [Concomitant]
     Dosage: 81 MG, QD
  8. EC-NAPROXEN [Suspect]
     Indication: MUSCULOSKELETAL PAIN
     Dosage: 440-660 MG, BID, PRN
     Route: 048
     Dates: end: 20110128
  9. OMEPRAZOLE [Concomitant]
     Dosage: 20 MG, QD
     Route: 048
  10. NORMAL SALINE [Concomitant]
     Route: 042
  11. CARVEDILOL [Concomitant]
     Dosage: 12.5 MG, BID
     Route: 048
  12. VOLTAREN-XR [Suspect]
     Indication: OSTEOARTHRITIS
     Dosage: 100 MG, BID
     Route: 048
     Dates: end: 20110128
  13. OMEPRAZOLE [Concomitant]
     Dosage: 20 MG, TID
     Route: 048
  14. LOVAZA [Concomitant]
     Dosage: 300+1000, QD
  15. GLUCOSAMINE /CHONDROITIN [Concomitant]
     Dosage: UNK
  16. ALLOPURINOL [Concomitant]
     Dosage: 300 MG, QD
     Route: 048
  17. CARISOPRODOL [Concomitant]
     Dosage: 350 MG, QD
     Route: 048
  18. FOLIC ACID [Concomitant]
     Dosage: 400 UG, AT PM
  19. PROBIOTICS [Concomitant]
     Dosage: UNK
  20. IBUPROFEN [Suspect]
     Indication: OSTEOARTHRITIS
     Dosage: 400 MG, QD, PM PRN
     Route: 048
     Dates: end: 20110128
  21. GABAPENTIN [Concomitant]
     Dosage: 300 MG, TID
     Route: 048
     Dates: start: 20100101
  22. FOLIC ACID [Concomitant]
     Dosage: 800 UG, AT AM
  23. NIASPAN [Concomitant]
     Dosage: 1000 MG, QD
     Route: 048
  24. MULTIVITAMIN [Concomitant]
     Dosage: UNK
  25. VITAMIN D [Concomitant]
     Dosage: 1000 IU, BID (AM AND PM)
  26. LICORICE [Concomitant]

REACTIONS (14)
  - GASTRITIS EROSIVE [None]
  - BRADYCARDIA [None]
  - FAECES DISCOLOURED [None]
  - PALLOR [None]
  - ASTHENIA [None]
  - FATIGUE [None]
  - MELAENA [None]
  - HAEMATEMESIS [None]
  - HAEMOGLOBIN DECREASED [None]
  - ABDOMINAL DISTENSION [None]
  - HYPOTENSION [None]
  - GASTROINTESTINAL HAEMORRHAGE [None]
  - CONFUSIONAL STATE [None]
  - VOMITING PROJECTILE [None]
